FAERS Safety Report 14667283 (Version 5)
Quarter: 2018Q3

REPORT INFORMATION
  Report Type: Report from Study
  Country: US (occurrence: US)
  Receive Date: 20180322
  Receipt Date: 20180911
  Transmission Date: 20181010
  Serious: Yes (Hospitalization, Other)
  Sender: FDA-Public Use
  Company Number: US-AMGEN-USASL2018037742

PATIENT
  Age: 70 Year
  Sex: Female
  Weight: 80.73 kg

DRUGS (2)
  1. METHOTREXATE. [Concomitant]
     Active Substance: METHOTREXATE
     Indication: RHEUMATOID ARTHRITIS
     Dosage: 7.5 MG, QWK
     Dates: start: 1988
  2. ENBREL [Suspect]
     Active Substance: ETANERCEPT
     Indication: RHEUMATOID ARTHRITIS
     Dosage: 50 MG, QWK
     Route: 058
     Dates: start: 2008

REACTIONS (15)
  - Eye disorder [Unknown]
  - Diabetes mellitus [Unknown]
  - Urinary tract infection [Recovered/Resolved]
  - Blood creatine phosphokinase increased [Unknown]
  - Arthritis [Unknown]
  - Dehydration [Unknown]
  - Anaemia [Unknown]
  - Fall [Recovered/Resolved]
  - Asthenia [Unknown]
  - Cataract [Unknown]
  - Renal failure [Unknown]
  - Impaired driving ability [Unknown]
  - Asthma [Unknown]
  - Ligament sprain [Unknown]
  - Malaise [Unknown]

NARRATIVE: CASE EVENT DATE: 201709
